FAERS Safety Report 10867097 (Version 2)
Quarter: 2015Q1

REPORT INFORMATION
  Report Type: Spontaneous
  Country: JP (occurrence: JP)
  Receive Date: 20150225
  Receipt Date: 20150318
  Transmission Date: 20150721
  Serious: Yes (Death, Life-Threatening, Other)
  Sender: FDA-Public Use
  Company Number: JP-ASTELLAS-2015US004017

PATIENT
  Age: 81 Year
  Sex: Male
  Weight: 60 kg

DRUGS (19)
  1. LASIX [Concomitant]
     Active Substance: FUROSEMIDE
     Indication: DIURETIC THERAPY
     Route: 042
     Dates: start: 20150119, end: 20150120
  2. CEFEPIME HYDROCHLORIDE. [Concomitant]
     Active Substance: CEFEPIME HYDROCHLORIDE
     Indication: PYREXIA
     Dosage: UNK UNK, UNKNOWN FREQ.
     Route: 065
     Dates: start: 20141226
  3. AMBISOME [Suspect]
     Active Substance: AMPHOTERICIN B
     Indication: FUNGAL INFECTION
     Route: 042
     Dates: start: 20150115, end: 20150119
  4. ACLARUBICIN [Concomitant]
     Active Substance: ACLARUBICIN
     Indication: PRODUCT USED FOR UNKNOWN INDICATION
     Dosage: UNK UNK, UNKNOWN FREQ.
     Dates: start: 20141225, end: 20141229
  5. MINOCYCLINE HYDROCHLORIDE. [Concomitant]
     Active Substance: MINOCYCLINE HYDROCHLORIDE
     Indication: PRODUCT USED FOR UNKNOWN INDICATION
     Dosage: UNK UNK, UNKNOWN FREQ.
     Route: 065
     Dates: start: 20150108, end: 20150112
  6. OXYGEN. [Concomitant]
     Active Substance: OXYGEN
     Indication: PRODUCT USED FOR UNKNOWN INDICATION
     Dosage: UNK UNK, UNKNOWN FREQ.
     Route: 065
     Dates: start: 20150116
  7. SAXIZON [Concomitant]
     Active Substance: HYDROCORTISONE SODIUM SUCCINATE
     Indication: PRODUCT USED FOR UNKNOWN INDICATION
     Dosage: UNK UNK, UNKNOWN FREQ.
     Route: 065
     Dates: start: 20140111, end: 20140114
  8. NEO-MINOPHAGEN C [Concomitant]
     Active Substance: AMMONIUM GLYCYRRHIZATE
     Indication: PRODUCT USED FOR UNKNOWN INDICATION
     Dosage: UNK UNK, UNKNOWN FREQ.
     Route: 065
     Dates: start: 20150119, end: 20150120
  9. CYTARABINE. [Concomitant]
     Active Substance: CYTARABINE
     Indication: PRODUCT USED FOR UNKNOWN INDICATION
     Dosage: UNK UNK, UNKNOWN FREQ.
     Route: 065
     Dates: start: 20141225, end: 20141229
  10. ZOSYN [Concomitant]
     Active Substance: PIPERACILLIN SODIUM\TAZOBACTAM SODIUM
     Indication: PRODUCT USED FOR UNKNOWN INDICATION
     Dosage: UNK UNK, UNKNOWN FREQ.
     Route: 065
     Dates: start: 20150119, end: 20150119
  11. PAZUFLOXACIN [Concomitant]
     Active Substance: PAZUFLOXACIN
     Indication: PRODUCT USED FOR UNKNOWN INDICATION
     Dosage: UNK UNK, UNKNOWN FREQ.
     Route: 065
     Dates: start: 20150105
  12. CYLOCIDE [Concomitant]
     Active Substance: CYTARABINE
     Indication: PRODUCT USED FOR UNKNOWN INDICATION
     Route: 065
     Dates: start: 20141225, end: 20150107
  13. MICAFUNGIN [Concomitant]
     Active Substance: MICAFUNGIN
     Indication: PRODUCT USED FOR UNKNOWN INDICATION
     Dosage: UNK UNK, UNKNOWN FREQ.
     Route: 065
     Dates: start: 20150108, end: 20150112
  14. VANCOMYCIN HYDROCHLORIDE. [Concomitant]
     Active Substance: VANCOMYCIN HYDROCHLORIDE
     Indication: PRODUCT USED FOR UNKNOWN INDICATION
     Dosage: UNK UNK, UNKNOWN FREQ.
     Route: 065
     Dates: start: 20150105, end: 20150113
  15. ITRACONAZOLE. [Concomitant]
     Active Substance: ITRACONAZOLE
     Indication: PRODUCT USED FOR UNKNOWN INDICATION
     Dosage: UNK UNK, UNKNOWN FREQ.
     Route: 065
     Dates: start: 20150114
  16. ACLACINON [Concomitant]
     Active Substance: ACLARUBICIN HYDROCHLORIDE
     Indication: PRODUCT USED FOR UNKNOWN INDICATION
     Dosage: 16 MG/PER DAY
     Route: 065
     Dates: start: 20141225, end: 20141229
  17. VANCOMYCIN [Concomitant]
     Active Substance: VANCOMYCIN
     Indication: PRODUCT USED FOR UNKNOWN INDICATION
     Dosage: UNK UNK, UNKNOWN FREQ.
     Route: 065
     Dates: start: 20150106, end: 20150114
  18. PAZUCROSS [Concomitant]
     Active Substance: PAZUFLOXACIN MESILATE
     Indication: PRODUCT USED FOR UNKNOWN INDICATION
     Dosage: UNK UNK, UNKNOWN FREQ.
     Route: 065
     Dates: start: 20150105, end: 20150118
  19. MEROPENEM. [Concomitant]
     Active Substance: MEROPENEM
     Indication: PRODUCT USED FOR UNKNOWN INDICATION
     Dosage: UNK UNK, UNKNOWN FREQ.
     Route: 065
     Dates: start: 20141226, end: 20150105

REACTIONS (2)
  - Pneumonia [None]
  - Renal impairment [Fatal]

NARRATIVE: CASE EVENT DATE: 20150119
